FAERS Safety Report 16967715 (Version 2)
Quarter: 2019Q4

REPORT INFORMATION
  Report Type: Spontaneous
  Country: MX (occurrence: MX)
  Receive Date: 20191028
  Receipt Date: 20191111
  Transmission Date: 20200122
  Serious: Yes (Other)
  Sender: FDA-Public Use
  Company Number: MX-PFIZER INC-2019462728

PATIENT
  Sex: Female
  Weight: 47 kg

DRUGS (1)
  1. SAYANA [Suspect]
     Active Substance: MEDROXYPROGESTERONE
     Indication: CONTRACEPTION
     Dosage: 1 DF, UNK
     Route: 058
     Dates: start: 20190429

REACTIONS (7)
  - Injection site induration [Unknown]
  - Muscle rupture [Recovering/Resolving]
  - Injection site pain [Recovering/Resolving]
  - Injection site reaction [Not Recovered/Not Resolved]
  - Muscle disorder [Unknown]
  - Muscle atrophy [Recovering/Resolving]
  - Injection site atrophy [Unknown]
